FAERS Safety Report 5125886-7 (Version None)
Quarter: 2006Q4

REPORT INFORMATION
  Report Type: 
  Country: None (occurrence: None)
  Receive Date: 20061012
  Receipt Date: 20060914
  Transmission Date: 20070319
  Serious: Yes (Hospitalization)
  Sender: FDA-Public Use
  Company Number: JP-JPN-A200603707

PATIENT
  Age: 87 Year
  Sex: Female
  Weight: 48 kg

DRUGS (4)
  1. SEREVENT [Suspect]
     Indication: ASTHMA
     Dosage: 3000MCG PER DAY
     Route: 055
     Dates: start: 20060913, end: 20060913
  2. FLUTIDE [Concomitant]
     Indication: ASTHMA
     Dosage: 400MCG PER DAY
     Route: 055
     Dates: start: 20060913
  3. KIPRES [Concomitant]
     Indication: ASTHMA
     Dosage: 10MG PER DAY
     Route: 048
     Dates: start: 20060913
  4. THEO-DUR [Concomitant]
     Indication: ASTHMA
     Dosage: 300MG PER DAY
     Route: 048
     Dates: start: 20060913

REACTIONS (5)
  - CHEST DISCOMFORT [None]
  - HYPOKALAEMIA [None]
  - OVERDOSE [None]
  - PALPITATIONS [None]
  - TREMOR [None]
